FAERS Safety Report 9348750 (Version 1)
Quarter: 2013Q2

REPORT INFORMATION
  Report Type: Spontaneous
  Country: RU (occurrence: RU)
  Receive Date: 20130614
  Receipt Date: 20130614
  Transmission Date: 20140414
  Serious: Yes (Death, Hospitalization, Other)
  Sender: FDA-Public Use
  Company Number: RU-009507513-1305RUS009042

PATIENT
  Age: 88 Year
  Sex: Female

DRUGS (4)
  1. EPTIFIBATIDE [Suspect]
     Indication: ACUTE CORONARY SYNDROME
     Dosage: 7.3 ML
     Route: 041
     Dates: start: 20130507, end: 20130507
  2. CLOPIDOGREL [Concomitant]
     Indication: ACUTE CORONARY SYNDROME
     Dosage: UNK
     Dates: start: 20130505
  3. DIAZEPAM [Concomitant]
  4. HEPARIN [Concomitant]

REACTIONS (13)
  - Haemorrhagic stroke [Fatal]
  - Brain oedema [Fatal]
  - Brain herniation [Fatal]
  - Coma [Unknown]
  - Hemiparesis [Unknown]
  - Chest pain [Unknown]
  - Blood glucose increased [Unknown]
  - Unresponsive to stimuli [Unknown]
  - Coronary artery stenosis [Unknown]
  - Leukodystrophy [Unknown]
  - Hydrocephalus [Unknown]
  - Gingival bleeding [Recovered/Resolved]
  - Haemoglobin decreased [Not Recovered/Not Resolved]
